FAERS Safety Report 16843334 (Version 1)
Quarter: 2019Q3

REPORT INFORMATION
  Report Type: Spontaneous
  Country: US (occurrence: US)
  Receive Date: 20190802
  Receipt Date: 20190802
  Transmission Date: 20191005
  Serious: No
  Sender: FDA-Public Use
  Company Number: None

PATIENT
  Age: 72 Year
  Sex: Female

DRUGS (3)
  1. IBRANCE [Suspect]
     Active Substance: PALBOCICLIB
     Dates: start: 201807
  2. FASLODEX [Concomitant]
     Active Substance: FULVESTRANT
  3. XGEVA [Concomitant]
     Active Substance: DENOSUMAB

REACTIONS (1)
  - Osteonecrosis of jaw [None]

NARRATIVE: CASE EVENT DATE: 20190802
